FAERS Safety Report 7589170-4 (Version None)
Quarter: 2011Q3

REPORT INFORMATION
  Report Type: 
  Country: None (occurrence: None)
  Receive Date: 20110705
  Receipt Date: 20110622
  Transmission Date: 20111222
  Serious: Yes (Hospitalization)
  Sender: FDA-Public Use
  Company Number: JP-SANOFI-AVENTIS-2011SA002469

PATIENT
  Age: 70 Year
  Sex: Male

DRUGS (3)
  1. TAXOTERE [Suspect]
     Indication: GASTRIC CANCER
     Route: 041
     Dates: start: 20110105, end: 20110105
  2. TS-1 [Suspect]
     Indication: GASTRIC CANCER
     Route: 048
     Dates: start: 20110105, end: 20110107
  3. CISPLATIN [Suspect]
     Indication: GASTRIC CANCER
     Route: 065
     Dates: start: 20110105, end: 20110105

REACTIONS (4)
  - SHOCK [None]
  - TUMOUR PERFORATION [None]
  - INFECTIOUS PERITONITIS [None]
  - ABDOMINAL PAIN [None]
